FAERS Safety Report 20257978 (Version 1)
Quarter: 2021Q4

REPORT INFORMATION
  Report Type: Spontaneous
  Country: US (occurrence: US)
  Receive Date: 20211230
  Receipt Date: 20211230
  Transmission Date: 20220303
  Serious: Yes (Hospitalization, Other)
  Sender: FDA-Public Use
  Company Number: US-SUNOVION-2021SUN004623

PATIENT
  Age: 54 Year
  Sex: Female

DRUGS (9)
  1. LURASIDONE HYDROCHLORIDE [Suspect]
     Active Substance: LURASIDONE HYDROCHLORIDE
     Indication: Bipolar II disorder
     Dosage: 20 MG
     Route: 048
  2. LURASIDONE HYDROCHLORIDE [Suspect]
     Active Substance: LURASIDONE HYDROCHLORIDE
     Dosage: 40 MG
     Route: 048
  3. METHAMPHETAMINE [Suspect]
     Active Substance: METHAMPHETAMINE
  4. LANTUS [Concomitant]
     Active Substance: INSULIN GLARGINE
     Dosage: 20 IU
  5. LANTUS [Concomitant]
     Active Substance: INSULIN GLARGINE
     Dosage: 40 IU
  6. METFORMIN [Concomitant]
     Active Substance: METFORMIN HYDROCHLORIDE
     Dosage: 1000 MG
  7. GABAPENTIN [Concomitant]
     Active Substance: GABAPENTIN
     Dosage: 300 MG, TID
  8. LISINOPRIL [Concomitant]
     Active Substance: LISINOPRIL
     Dosage: 20 MG
  9. METOPROLOL [Concomitant]
     Active Substance: METOPROLOL
     Dosage: 25 MG, BID

REACTIONS (13)
  - Chorea [Recovering/Resolving]
  - Hyperglycaemia [Recovering/Resolving]
  - Glycosylated haemoglobin increased [Recovering/Resolving]
  - Ballismus [Recovering/Resolving]
  - Hypertensive urgency [Unknown]
  - Hypokalaemia [Unknown]
  - Pneumonia [Unknown]
  - Somnolence [Unknown]
  - Nitrite urine [Unknown]
  - Computerised tomogram head abnormal [Unknown]
  - Magnetic resonance imaging head abnormal [Unknown]
  - Hyponatraemia [Unknown]
  - Off label use [Unknown]
